FAERS Safety Report 7818937-X (Version None)
Quarter: 2011Q4

REPORT INFORMATION
  Report Type: 
  Country: None (occurrence: None)
  Receive Date: 20111017
  Receipt Date: 20111017
  Transmission Date: 20120403
  Serious: Yes (Other)
  Sender: FDA-Public Use
  Company Number: None

PATIENT
  Sex: Female
  Weight: 58.0604 kg

DRUGS (1)
  1. METOPROLOL TARTRATE [Suspect]
     Indication: HYPERTENSION
     Dosage: 25 MGS 1 TAB ONE DAY
     Dates: start: 20110531, end: 20110915

REACTIONS (3)
  - NIGHTMARE [None]
  - FATIGUE [None]
  - FEELING ABNORMAL [None]
